FAERS Safety Report 7227607-0 (Version None)
Quarter: 2011Q1

REPORT INFORMATION
  Report Type: 
  Country: None (occurrence: None)
  Receive Date: 20110114
  Receipt Date: 20110106
  Transmission Date: 20110831
  Serious: Yes (Hospitalization)
  Sender: FDA-Public Use
  Company Number: US-US-EMD SERONO, INC.-7035246

PATIENT
  Sex: Female

DRUGS (1)
  1. REBIF [Suspect]
     Indication: PRODUCT USED FOR UNKNOWN INDICATION
     Route: 058
     Dates: start: 20100719

REACTIONS (5)
  - SENSATION OF HEAVINESS [None]
  - BURNING SENSATION [None]
  - FATIGUE [None]
  - VISUAL IMPAIRMENT [None]
  - EYE PAIN [None]
